FAERS Safety Report 4667274-3 (Version None)
Quarter: 2005Q2

REPORT INFORMATION
  Report Type: 
  Country: None (occurrence: None)
  Receive Date: 20050520
  Receipt Date: 20050511
  Transmission Date: 20051028
  Serious: Yes (Other)
  Sender: FDA-Public Use
  Company Number: US-JNJFOC-20050503667

PATIENT
  Sex: Female
  Weight: 81.65 kg

DRUGS (8)
  1. TOPAMAX [Suspect]
     Route: 049
     Dates: start: 20040101
  2. TOPAMAX [Suspect]
     Indication: HEADACHE
     Route: 049
     Dates: start: 20040101
  3. ZOLOFT [Concomitant]
     Indication: DRUG USE FOR UNKNOWN INDICATION
     Route: 049
  4. VALIUM [Concomitant]
     Indication: DRUG USE FOR UNKNOWN INDICATION
     Route: 049
  5. COZAAR [Concomitant]
     Indication: HYPERTENSION
     Route: 049
  6. NEXIUM [Concomitant]
     Indication: DRUG USE FOR UNKNOWN INDICATION
     Route: 049
  7. ANTIVERT [Concomitant]
     Route: 049
  8. ANTIVERT [Concomitant]
     Indication: DRUG USE FOR UNKNOWN INDICATION
     Route: 049

REACTIONS (8)
  - DIZZINESS [None]
  - FATIGUE [None]
  - HIATUS HERNIA [None]
  - HYPOTENSION [None]
  - INSOMNIA [None]
  - MUSCLE TWITCHING [None]
  - VISION BLURRED [None]
  - WEIGHT INCREASED [None]
